FAERS Safety Report 7907611-7 (Version None)
Quarter: 2011Q4

REPORT INFORMATION
  Report Type: 
  Country: None (occurrence: None)
  Receive Date: 20111110
  Receipt Date: 20111103
  Transmission Date: 20120403
  Serious: Yes (Hospitalization)
  Sender: FDA-Public Use
  Company Number: PHHO2011DE06438

PATIENT
  Sex: Female
  Weight: 84 kg

DRUGS (12)
  1. MOVIPREP [Concomitant]
     Indication: CONSTIPATION
  2. LORAZEPAM [Concomitant]
     Indication: SLEEP DISORDER
  3. METOCLOPRAMIDE [Concomitant]
  4. LEVOTHYROXINE SODIUM [Concomitant]
     Indication: HYPOTHYROIDISM
  5. ANTIDEPRESSANTS [Concomitant]
  6. CITALOPRAM HYDROBROMIDE [Concomitant]
     Indication: BIPOLAR DISORDER
  7. IBUPROFEN [Concomitant]
  8. LITHIUM [Concomitant]
  9. GILENYA [Suspect]
     Indication: MULTIPLE SCLEROSIS
     Dosage: 0.5 MG, QD
     Route: 048
     Dates: start: 20101124
  10. LITHIUM CARBONATE [Suspect]
     Indication: BIPOLAR DISORDER
  11. ZOPICLON [Concomitant]
     Indication: SLEEP DISORDER
  12. BETAHISTINE [Concomitant]
     Indication: VERTIGO

REACTIONS (1)
  - EPILEPSY [None]
